FAERS Safety Report 8510277-9 (Version None)
Quarter: 2012Q3

REPORT INFORMATION
  Report Type: 
  Country: None (occurrence: None)
  Receive Date: 20120713
  Receipt Date: 20120702
  Transmission Date: 20120928
  Serious: Yes (Hospitalization)
  Sender: FDA-Public Use
  Company Number: HR-BAXTER-2012BAX010419

PATIENT
  Age: 42 Year
  Sex: Female
  Weight: 52 kg

DRUGS (15)
  1. ALLOPURINOL [Concomitant]
     Route: 048
     Dates: start: 20050101
  2. TOMID [Concomitant]
     Route: 048
     Dates: start: 20050101
  3. KALCIJEV KARBONAT KRKA [Concomitant]
     Route: 048
     Dates: start: 20050101
  4. ASPIRIN [Concomitant]
     Route: 048
     Dates: start: 20050101
  5. DIANEAL PD-1 W/ DEXTROSE 2.5% IN PLASTIC CONTAINER [Suspect]
  6. ROCALTROL [Concomitant]
     Route: 048
     Dates: start: 20050101
  7. PLIBEX [Concomitant]
     Route: 048
     Dates: start: 20050101
  8. FOLIC ACID [Concomitant]
     Route: 048
     Dates: start: 20050101
  9. DIANEAL PD-1 W/ DEXTROSE 2.5% IN PLASTIC CONTAINER [Suspect]
     Route: 033
  10. VAL [Concomitant]
     Route: 048
     Dates: start: 20050101
  11. CARVELOL [Concomitant]
     Route: 048
     Dates: start: 20050101
  12. RENAGEL [Concomitant]
     Route: 048
     Dates: start: 20050101
  13. PLENDIL [Concomitant]
     Route: 048
     Dates: start: 20050101
  14. MIRCERA [Concomitant]
     Route: 058
     Dates: start: 20100101
  15. ZIPANTOLA [Concomitant]
     Indication: GASTRITIS
     Route: 048
     Dates: start: 20050101

REACTIONS (6)
  - PERITONITIS BACTERIAL [None]
  - CHILLS [None]
  - VOMITING [None]
  - DIARRHOEA [None]
  - PYREXIA [None]
  - STREPTOCOCCUS TEST POSITIVE [None]
